FAERS Safety Report 21359611 (Version 1)
Quarter: 2022Q3

REPORT INFORMATION
  Report Type: 
  Country: FR (occurrence: FR)
  Receive Date: 20220921
  Receipt Date: 20220921
  Transmission Date: 20221027
  Serious: Yes (Death)
  Sender: FDA-Public Use
  Company Number: FR-Stemline Therapeutics, Inc.-2022ST000170

PATIENT
  Age: 70 Year
  Sex: Male
  Weight: 109 kg

DRUGS (1)
  1. ELZONRIS [Suspect]
     Active Substance: TAGRAXOFUSP-ERZS
     Indication: Acute leukaemia
     Route: 042
     Dates: start: 20200214, end: 20200214

REACTIONS (1)
  - Tumour lysis syndrome [Fatal]

NARRATIVE: CASE EVENT DATE: 20200214
